FAERS Safety Report 18566542 (Version 1)
Quarter: 2020Q4

REPORT INFORMATION
  Report Type: Spontaneous
  Country: FR (occurrence: FR)
  Receive Date: 20201201
  Receipt Date: 20201201
  Transmission Date: 20210114
  Serious: Yes (Hospitalization)
  Sender: FDA-Public Use
  Company Number: FR-MYLANLABS-2020M1097335

PATIENT
  Age: 94 Year
  Sex: Male

DRUGS (6)
  1. KETOPROFENE MYLAN LP 200 MG, GELULE A LIBERATION PROLONGEE [Suspect]
     Active Substance: KETOPROFEN
     Indication: BACK PAIN
     Dosage: 2 DOSAGE FORM, QD
     Route: 048
     Dates: start: 20200527, end: 20200602
  2. METFORMINE                         /00082701/ [Concomitant]
     Active Substance: METFORMIN HYDROCHLORIDE
     Dosage: UNK
     Route: 048
  3. OMEPRAZOLE. [Concomitant]
     Active Substance: OMEPRAZOLE
     Dosage: 20 MILLIGRAM, QD
     Route: 048
     Dates: end: 20200609
  4. KARDEGIC [Concomitant]
     Active Substance: ASPIRIN DL-LYSINE
     Dosage: 1 DOSAGE FORM, QD
     Route: 048
     Dates: end: 20200609
  5. NOVOMIX [Concomitant]
     Active Substance: INSULIN ASPART
     Dosage: UNK
     Route: 058
     Dates: end: 20200609
  6. DOLIPRANE [Suspect]
     Active Substance: ACETAMINOPHEN
     Indication: BACK PAIN
     Dosage: 3 DOSAGE FORM, QD
     Route: 048
     Dates: start: 20200527, end: 20200602

REACTIONS (4)
  - Duodenitis [Not Recovered/Not Resolved]
  - Pneumonia aspiration [Recovered/Resolved]
  - Enteritis [Not Recovered/Not Resolved]
  - Gastrointestinal inflammation [Not Recovered/Not Resolved]

NARRATIVE: CASE EVENT DATE: 20200602
